FAERS Safety Report 8997753 (Version 1)
Quarter: 2013Q1

REPORT INFORMATION
  Report Type: Spontaneous
  Country: GB (occurrence: GB)
  Receive Date: 20130104
  Receipt Date: 20130104
  Transmission Date: 20140127
  Serious: Yes (Life-Threatening)
  Sender: FDA-Public Use
  Company Number: PHHY2013GB001068

PATIENT
  Age: 66 Year
  Sex: Female
  Weight: 104 kg

DRUGS (6)
  1. SIMVASTATIN [Suspect]
     Indication: TYPE 2 DIABETES MELLITUS
     Dosage: 40 MG, UNK
     Route: 048
     Dates: start: 2004, end: 20120917
  2. CANDESARTAN [Concomitant]
     Dosage: 32 MG, UNK
  3. FEXOFENADINE [Concomitant]
  4. LANSOPRAZOLE [Concomitant]
  5. ETODOLAC [Concomitant]
  6. METFORMIN [Concomitant]

REACTIONS (11)
  - Dyshidrotic eczema [Recovered/Resolved]
  - Cardiomyopathy [Unknown]
  - Local swelling [Recovered/Resolved]
  - Neuropathy peripheral [Recovering/Resolving]
  - Arthralgia [Recovered/Resolved]
  - Dyspepsia [Recovering/Resolving]
  - Flatulence [Recovering/Resolving]
  - Dyspnoea [Recovering/Resolving]
  - Muscular weakness [Recovered/Resolved]
  - Mobility decreased [Recovered/Resolved]
  - Dysstasia [Recovered/Resolved]
